FAERS Safety Report 22012713 (Version 1)
Quarter: 2023Q1

REPORT INFORMATION
  Report Type: Spontaneous
  Country: JP (occurrence: JP)
  Receive Date: 20230220
  Receipt Date: 20230220
  Transmission Date: 20230418
  Serious: Yes (Hospitalization)
  Sender: FDA-Public Use
  Company Number: JP-BAUSCHBL-2023BNL001211

PATIENT
  Age: 79 Year
  Sex: Female

DRUGS (1)
  1. BROMFENAC SODIUM [Suspect]
     Active Substance: BROMFENAC SODIUM
     Indication: Product used for unknown indication
     Route: 047

REACTIONS (3)
  - Diplopia [Unknown]
  - Mydriasis [Unknown]
  - Overdose [Unknown]
